FAERS Safety Report 4907163-X (Version None)
Quarter: 2006Q1

REPORT INFORMATION
  Report Type: 
  Country: None (occurrence: None)
  Receive Date: 20060206
  Receipt Date: 20050221
  Transmission Date: 20060701
  Serious: Yes (Life-Threatening)
  Sender: FDA-Public Use
  Company Number: 02100-JPN-05-0050

PATIENT
  Age: 63 Year
  Sex: Female

DRUGS (10)
  1. CILOSTAZOL [Suspect]
     Dosage: 200 MG ORAL
     Route: 048
     Dates: start: 20050114, end: 20050120
  2. FUROSEMIDE [Concomitant]
  3. CANDESARTAN CILEXETIL [Concomitant]
  4. SPIRONOLACTONE [Concomitant]
  5. FAMOTIDINE [Concomitant]
  6. ASPIRIN [Concomitant]
  7. PRAVASTATIN SODIUM [Concomitant]
  8. CARVEDILOL [Concomitant]
  9. HUMAN INSULIN (GENETICAL RECOMBINATION) [Concomitant]
  10. TICLOPIDINE HYDROCHLORIDE [Concomitant]

REACTIONS (6)
  - ALANINE AMINOTRANSFERASE INCREASED [None]
  - ASPARTATE AMINOTRANSFERASE INCREASED [None]
  - HEART RATE INCREASED [None]
  - LIVER DISORDER [None]
  - VENTRICULAR EXTRASYSTOLES [None]
  - VENTRICULAR TACHYCARDIA [None]
